FAERS Safety Report 5129038-6 (Version None)
Quarter: 2006Q4

REPORT INFORMATION
  Report Type: 
  Country: None (occurrence: None)
  Receive Date: 20061011
  Receipt Date: 20060927
  Transmission Date: 20070319
  Serious: Yes (Hospitalization)
  Sender: FDA-Public Use
  Company Number: CERZ-11336

PATIENT
  Age: 57 Year
  Sex: Male
  Weight: 88 kg

DRUGS (4)
  1. CEREZYME [Suspect]
     Indication: GAUCHER'S DISEASE
     Dosage: 1400 UNITS Q2WKS IV
     Route: 042
     Dates: start: 19940720
  2. LIPITOR [Concomitant]
  3. CELEXA [Concomitant]
  4. FOSAMAX [Concomitant]

REACTIONS (2)
  - MYOCARDIAL INFARCTION [None]
  - OSTEOPENIA [None]
